FAERS Safety Report 11627750 (Version 1)
Quarter: 2015Q4

REPORT INFORMATION
  Report Type: Spontaneous
  Country: US (occurrence: US)
  Receive Date: 20151014
  Receipt Date: 20151014
  Transmission Date: 20160304
  Serious: No
  Sender: FDA-Public Use
  Company Number: US-GLENMARK PHARMACEUTICALS INC, USA.-2015GMK016892

PATIENT

DRUGS (3)
  1. GABAPENTIN. [Suspect]
     Active Substance: GABAPENTIN
     Indication: POST HERPETIC NEURALGIA
     Dosage: 1200 MG, QD
     Route: 065
  2. GABAPENTIN. [Suspect]
     Active Substance: GABAPENTIN
     Dosage: 2400 MG, QD
     Route: 065
  3. GABAPENTIN. [Suspect]
     Active Substance: GABAPENTIN
     Dosage: 3600 MG, QD
     Route: 065

REACTIONS (9)
  - Somnolence [Unknown]
  - Oedema peripheral [Unknown]
  - Fatigue [Unknown]
  - Dizziness [Unknown]
  - Diarrhoea [Unknown]
  - Constipation [Unknown]
  - Headache [Unknown]
  - Nausea [Unknown]
  - Weight increased [Unknown]
